FAERS Safety Report 9921767 (Version 1)
Quarter: 2014Q1

REPORT INFORMATION
  Report Type: Report from Study
  Country: JP (occurrence: JP)
  Receive Date: 20140225
  Receipt Date: 20140225
  Transmission Date: 20141002
  Serious: Yes (Other)
  Sender: FDA-Public Use
  Company Number: JP-JNJFOC-20140214605

PATIENT
  Age: 70 Year
  Sex: Female
  Weight: 53 kg

DRUGS (6)
  1. XARELTO [Suspect]
     Indication: ATRIAL FIBRILLATION
     Route: 048
     Dates: start: 20130507, end: 20130710
  2. XARELTO [Suspect]
     Indication: THROMBOSIS PROPHYLAXIS
     Route: 048
     Dates: start: 20130507, end: 20130710
  3. XARELTO [Suspect]
     Indication: CEREBROVASCULAR ACCIDENT PROPHYLAXIS
     Route: 048
     Dates: start: 20130507, end: 20130710
  4. LANIRAPID [Concomitant]
     Route: 048
  5. CONIEL [Concomitant]
     Route: 048
  6. GASTER [Concomitant]
     Route: 048

REACTIONS (1)
  - Hepatic function abnormal [Recovered/Resolved]
